FAERS Safety Report 10541356 (Version 2)
Quarter: 2014Q4

REPORT INFORMATION
  Report Type: Spontaneous
  Country: US (occurrence: None)
  Receive Date: 20141010
  Receipt Date: 20141205
  Transmission Date: 20150529
  Serious: No
  Sender: FDA-Public Use
  Company Number: 163-POMAL-14052623

PATIENT
  Age: 76 Year
  Sex: Female

DRUGS (15)
  1. CRESTOR [Concomitant]
     Active Substance: ROSUVASTATIN CALCIUM
  2. MULTIVITAMINS [Concomitant]
     Active Substance: VITAMINS
  3. LOSARTAN [Concomitant]
     Active Substance: LOSARTAN
  4. ZOLPIDEM [Concomitant]
     Active Substance: ZOLPIDEM\ZOLPIDEM TARTRATE
  5. CALCIUM CARBONATE. [Concomitant]
     Active Substance: CALCIUM CARBONATE
  6. POTASSIUM CHLORIDE. [Concomitant]
     Active Substance: POTASSIUM CHLORIDE
  7. ESCITALOPRAM [Concomitant]
     Active Substance: ESCITALOPRAM OXALATE
  8. ACYCLOVIR (ACICLOVIR) (ACICLOVIR) [Concomitant]
     Active Substance: ACYCLOVIR
  9. VITAMIN D (ERGOCALCIFEROL) [Concomitant]
     Active Substance: ERGOCALCIFEROL
  10. PRILOSEC (OMEPRAZOLE) [Concomitant]
     Active Substance: OMEPRAZOLE MAGNESIUM
  11. POMALYST [Suspect]
     Active Substance: POMALIDOMIDE
     Indication: PLASMA CELL MYELOMA
     Dosage: 2 MG, 21 IN 21 D, PO
     Route: 048
     Dates: start: 20140418
  12. ADVIL [Concomitant]
     Active Substance: IBUPROFEN
  13. ASPIRINE (ACETYLSALICYLIC ACID) [Concomitant]
  14. LUNESTA [Concomitant]
     Active Substance: ESZOPICLONE
  15. DEXAMETHASONE. [Concomitant]
     Active Substance: DEXAMETHASONE

REACTIONS (8)
  - Skin tightness [None]
  - Fatigue [None]
  - Dry skin [None]
  - Tremor [None]
  - Pruritus [None]
  - Diarrhoea [None]
  - Rash [None]
  - Paraesthesia [None]

NARRATIVE: CASE EVENT DATE: 2014
